FAERS Safety Report 23286627 (Version 1)
Quarter: 2023Q4

REPORT INFORMATION
  Report Type: Spontaneous
  Country: DE (occurrence: DE)
  Receive Date: 20231212
  Receipt Date: 20231212
  Transmission Date: 20240110
  Serious: Yes (Death, Hospitalization, Other)
  Sender: FDA-Public Use
  Company Number: DE-SA-2018SA156996

PATIENT
  Age: 75 Year
  Sex: Male

DRUGS (24)
  1. BECLOMETHASONE DIPROPIONATE [Suspect]
     Active Substance: BECLOMETHASONE DIPROPIONATE
     Indication: Feeling cold
     Dosage: DOSE DESCRIPTION : 2 DF, QD
     Route: 055
     Dates: start: 19970702
  2. BECLOMETHASONE DIPROPIONATE [Suspect]
     Active Substance: BECLOMETHASONE DIPROPIONATE
     Indication: Chronic obstructive pulmonary disease
  3. OMEPRAZOLE [Suspect]
     Active Substance: OMEPRAZOLE
     Indication: Gastric ulcer
     Dosage: DOSE DESCRIPTION : 1 DF, QD
     Route: 048
     Dates: start: 19970704
  4. ASPIRIN [Suspect]
     Active Substance: ASPIRIN
     Indication: Thrombosis prophylaxis
     Dosage: DOSE DESCRIPTION : 100 MG, QD
     Route: 048
  5. ACETYLCYSTEINE [Suspect]
     Active Substance: ACETYLCYSTEINE
     Indication: Gastrointestinal tract mucosal discolouration
     Dosage: DOSE DESCRIPTION : UNK
     Route: 048
     Dates: start: 19970702
  6. PREDNISOLONE [Suspect]
     Active Substance: PREDNISOLONE
     Indication: Chronic obstructive pulmonary disease
     Dosage: DOSE DESCRIPTION : 30 MG, QD
     Route: 048
     Dates: start: 19970702
  7. PREDNISOLONE [Suspect]
     Active Substance: PREDNISOLONE
     Indication: Feeling cold
  8. SULTAMICILLIN [Suspect]
     Active Substance: SULTAMICILLIN
     Indication: Pneumonia
     Dosage: DOSE DESCRIPTION : 1 DF, QD
     Route: 048
     Dates: start: 19970702
  9. THEOPHYLLINE [Suspect]
     Active Substance: THEOPHYLLINE
     Indication: Chronic obstructive pulmonary disease
     Dosage: DOSE DESCRIPTION : 1 DF, QD
     Route: 048
     Dates: start: 19970707
  10. THEOPHYLLINE [Suspect]
     Active Substance: THEOPHYLLINE
     Indication: Feeling cold
  11. ISOSORBIDE MONONITRATE [Suspect]
     Active Substance: ISOSORBIDE MONONITRATE
     Indication: Coronary artery disease
     Dosage: DOSE DESCRIPTION : 1 DF, QD
     Route: 048
     Dates: start: 19970702
  12. FENOTEROL HYDROBROMIDE\IPRATROPIUM BROMIDE [Suspect]
     Active Substance: FENOTEROL HYDROBROMIDE\IPRATROPIUM BROMIDE
     Indication: Chronic obstructive pulmonary disease
     Dosage: DOSE DESCRIPTION : 2 DF, QD
     Route: 055
     Dates: start: 19970702
  13. FUROSEMIDE [Suspect]
     Active Substance: FUROSEMIDE
     Indication: Oedema
     Dosage: DOSE DESCRIPTION : UNK
     Route: 048
     Dates: start: 19970702
  14. CERTOPARIN SODIUM [Suspect]
     Active Substance: CERTOPARIN SODIUM
     Indication: Thrombosis prophylaxis
     Dosage: DOSE DESCRIPTION : 1 DF, QD
     Route: 058
     Dates: start: 19970702
  15. XIPAMIDE [Suspect]
     Active Substance: XIPAMIDE
     Indication: Oedema
     Dosage: DOSE DESCRIPTION : UNK
     Route: 048
     Dates: start: 19970709
  16. BENSERAZIDE HYDROCHLORIDE [Suspect]
     Active Substance: BENSERAZIDE HYDROCHLORIDE
     Indication: Parkinsonism
     Dosage: DOSE DESCRIPTION : 125 MG, QD
     Route: 048
     Dates: start: 19970702
  17. ALFUZOSIN HYDROCHLORIDE [Concomitant]
     Active Substance: ALFUZOSIN HYDROCHLORIDE
     Indication: Benign prostatic hyperplasia
     Dosage: DOSE DESCRIPTION : UNK
     Route: 048
     Dates: start: 19970701
  18. ALFUZOSIN HYDROCHLORIDE [Concomitant]
     Active Substance: ALFUZOSIN HYDROCHLORIDE
     Indication: Benign neoplasm of islets of Langerhans
  19. AMLODIPINE [Concomitant]
     Active Substance: AMLODIPINE BESYLATE
     Indication: Hypertension
     Dosage: DOSE DESCRIPTION : 5 MG, QD
     Route: 048
  20. FOSINOPRIL SODIUM [Concomitant]
     Active Substance: FOSINOPRIL SODIUM
     Indication: Hypertonia
     Route: 048
  21. DIGITOXIN [Concomitant]
     Active Substance: DIGITOXIN
     Indication: Cardiac failure
     Route: 048
  22. GLIMEPIRIDE [Concomitant]
     Active Substance: GLIMEPIRIDE
     Indication: Diabetes mellitus
     Route: 048
  23. ISOSORBIDE DINITRATE [Concomitant]
     Active Substance: ISOSORBIDE DINITRATE
     Indication: Coronary artery disease
     Dosage: DOSE DESCRIPTION : 40 MG, QD
     Route: 048
     Dates: start: 19970701
  24. CIPROFLOXACIN [Concomitant]
     Active Substance: CIPROFLOXACIN
     Indication: Pneumonia
     Route: 042

REACTIONS (6)
  - Toxic epidermal necrolysis [Fatal]
  - Stevens-Johnson syndrome [Unknown]
  - Multiple organ dysfunction syndrome [Unknown]
  - Rash [Unknown]
  - Dermatitis bullous [Unknown]
  - Oral mucosal eruption [Unknown]

NARRATIVE: CASE EVENT DATE: 19970711
